FAERS Safety Report 8499084-3 (Version None)
Quarter: 2012Q2

REPORT INFORMATION
  Report Type: 
  Country: None (occurrence: None)
  Receive Date: 20120405
  Receipt Date: 20100315
  Transmission Date: 20120825
  Serious: Yes (Other)
  Sender: FDA-Public Use
  Company Number: PHEH2010US03137

PATIENT
  Age: 62 Year
  Sex: Female

DRUGS (6)
  1. RECLAST [Suspect]
     Dosage: INFUSION
     Dates: start: 20100127, end: 20100127
  2. COUMADIN [Concomitant]
  3. RYTHMOL [Concomitant]
  4. CALCIUM CARBONATE [Concomitant]
  5. VITAMIN D [Concomitant]
  6. ANTACID (AMINOACETIC ACID, CALCIUM CARBONATE) [Concomitant]

REACTIONS (10)
  - SLUGGISHNESS [None]
  - PAIN [None]
  - INFLUENZA LIKE ILLNESS [None]
  - HYPOAESTHESIA [None]
  - CHILLS [None]
  - ARTHRALGIA [None]
  - BONE PAIN [None]
  - NAUSEA [None]
  - CHEST PAIN [None]
  - DEHYDRATION [None]
